FAERS Safety Report 4811158-4 (Version None)
Quarter: 2005Q4

REPORT INFORMATION
  Report Type: 
  Country: None (occurrence: None)
  Receive Date: 20051027
  Receipt Date: 20051021
  Transmission Date: 20060501
  Serious: Yes (Death)
  Sender: FDA-Public Use
  Company Number: 2005AC01671

PATIENT
  Age: 58 Year
  Sex: Female

DRUGS (6)
  1. QUETIAPINE FUMARATE [Suspect]
  2. SALICYLIC ACID [Suspect]
  3. CARBAMAZEPINE [Suspect]
  4. TRAZODONE HCL [Suspect]
  5. TRIHEXYPHENIDYL HCL [Suspect]
  6. IBUPROFEN [Suspect]

REACTIONS (4)
  - COMPLETED SUICIDE [None]
  - MULTIPLE DRUG OVERDOSE [None]
  - POISONING [None]
  - VOMITING [None]
